FAERS Safety Report 5334346-X (Version None)
Quarter: 2007Q2

REPORT INFORMATION
  Report Type: 
  Country: None (occurrence: None)
  Receive Date: 20070523
  Receipt Date: 20070515
  Transmission Date: 20071010
  Serious: Yes (Other)
  Sender: FDA-Public Use
  Company Number: 155466USA

PATIENT
  Age: 23 Year
  Sex: Male

DRUGS (4)
  1. CLOZAPINE [Suspect]
     Indication: SCHIZOPHRENIA
     Dosage: 25 MG 2 TABS BID, 100 MG 1 TAB BID
     Dates: start: 20060101, end: 20070423
  2. VALPROATE SODIUM [Concomitant]
  3. VENLAFAXIINE HCL [Concomitant]
  4. BENZTROPINE MESYLATE [Concomitant]

REACTIONS (1)
  - DRUG TOXICITY [None]
